FAERS Safety Report 6847532-4 (Version None)
Quarter: 2010Q3

REPORT INFORMATION
  Report Type: 
  Country: None (occurrence: None)
  Receive Date: 20100716
  Receipt Date: 20100615
  Transmission Date: 20110219
  Serious: No
  Sender: FDA-Public Use
  Company Number: US-BAYER-201017078BCC

PATIENT
  Age: 74 Year
  Sex: Female
  Weight: 77 kg

DRUGS (11)
  1. ALEVE (CAPLET) [Suspect]
     Indication: BACK PAIN
     Dosage: UNIT DOSE: 220 MG
     Route: 048
     Dates: start: 20100612, end: 20100613
  2. ALEVE (CAPLET) [Suspect]
     Dosage: TOTAL DAILY DOSE: 220 MG  UNIT DOSE: 220 MG
     Route: 048
     Dates: start: 20100614
  3. ALEVE (CAPLET) [Suspect]
     Route: 048
  4. DIURETIC [Concomitant]
     Route: 065
  5. ANTIBIOTIC [Concomitant]
     Route: 065
  6. ASPIRIN [Concomitant]
     Route: 065
  7. VITAMIN C [Concomitant]
     Route: 065
  8. VITAMIN D [Concomitant]
     Route: 065
  9. FISH OIL [Concomitant]
     Route: 065
  10. MEIJERS CALCIUM [Concomitant]
     Route: 065
  11. VITAMIN E [Concomitant]
     Route: 065

REACTIONS (2)
  - BACK PAIN [None]
  - NAUSEA [None]
